FAERS Safety Report 15172016 (Version 1)
Quarter: 2018Q3

REPORT INFORMATION
  Report Type: Spontaneous
  Country: SE (occurrence: SE)
  Receive Date: 20180720
  Receipt Date: 20180720
  Transmission Date: 20181010
  Serious: Yes (Other)
  Sender: FDA-Public Use
  Company Number: SE-PFIZER INC-2018290172

PATIENT
  Age: 40 Year
  Sex: Male

DRUGS (1)
  1. CLINDAMYCIN PHOSPHATE. [Suspect]
     Active Substance: CLINDAMYCIN PHOSPHATE
     Indication: WOUND INFECTION
     Dosage: UNK
     Route: 042
     Dates: start: 201805, end: 201805

REACTIONS (1)
  - Skin reaction [Unknown]

NARRATIVE: CASE EVENT DATE: 201805
